FAERS Safety Report 6698189-7 (Version None)
Quarter: 2010Q2

REPORT INFORMATION
  Report Type: 
  Country: None (occurrence: None)
  Receive Date: 20100427
  Receipt Date: 20100412
  Transmission Date: 20101027
  Serious: Yes (Hospitalization)
  Sender: FDA-Public Use
  Company Number: US-ASTRAZENECA-2009UW14542

PATIENT
  Age: 21606 Day
  Sex: Female

DRUGS (4)
  1. SEROQUEL [Suspect]
     Route: 048
  2. ATIVAN [Concomitant]
     Route: 048
     Dates: start: 20080101
  3. PRINIVIL [Concomitant]
     Route: 048
     Dates: start: 20080101
  4. PREVACID [Concomitant]
     Route: 048
     Dates: start: 20080101

REACTIONS (4)
  - DIABETES MELLITUS [None]
  - DIABETIC FOOT [None]
  - DIABETIC GASTROPARESIS [None]
  - DIABETIC NEUROPATHY [None]
